FAERS Safety Report 17970621 (Version 1)
Quarter: 2020Q3

REPORT INFORMATION
  Report Type: Spontaneous
  Country: US (occurrence: US)
  Receive Date: 20200702
  Receipt Date: 20200702
  Transmission Date: 20201103
  Serious: Yes (Other)
  Sender: FDA-Public Use
  Company Number: US-TEVA-2020-US-1791235

PATIENT
  Age: 65 Year
  Sex: Female

DRUGS (1)
  1. AUSTEDO [Suspect]
     Active Substance: DEUTETRABENAZINE
     Indication: TARDIVE DYSKINESIA
     Dosage: 12 MILLIGRAM DAILY;
     Route: 048

REACTIONS (10)
  - Cerebrovascular accident [Unknown]
  - Head injury [Unknown]
  - Glossodynia [Unknown]
  - Fall [Unknown]
  - Oral pain [Unknown]
  - Loss of consciousness [Unknown]
  - Device physical property issue [Unknown]
  - Pain [Unknown]
  - Mouth haemorrhage [Unknown]
  - Compulsive cheek biting [Unknown]

NARRATIVE: CASE EVENT DATE: 202001
